FAERS Safety Report 8377178-0 (Version None)
Quarter: 2012Q2

REPORT INFORMATION
  Report Type: 
  Country: None (occurrence: None)
  Receive Date: 20120521
  Receipt Date: 20120508
  Transmission Date: 20120825
  Serious: Yes (Hospitalization, Other)
  Sender: FDA-Public Use
  Company Number: AUR-APL-2012-02254

PATIENT
  Age: 48 Year
  Sex: Male
  Weight: 86.08 kg

DRUGS (16)
  1. OMEPRAZOLE [Concomitant]
  2. HYDROCORTONE [Concomitant]
  3. THIAMINE HCL [Concomitant]
  4. ATROPINE [Concomitant]
  5. MULTIVITAMIN [Concomitant]
  6. DILTIAZEM [Concomitant]
  7. PAROXETINE HCL [Suspect]
     Indication: POSTPARTUM STRESS DISORDER
     Dosage: 40 MG (40 G, 1 IN 1 D)
     Dates: start: 20120309
  8. TRAZODONE HCL [Concomitant]
  9. DEXTROMETHORPHAN HYDROBROMIDE/GUAIFENESIN (TUSSIN DM) [Concomitant]
  10. ZIPRASIDONE HCL [Suspect]
     Indication: POSTPARTUM STRESS DISORDER
     Dosage: MG, 2 IN 1 D, UNKNOWN
     Dates: start: 20120427, end: 20120502
  11. BUTALBIRAL, ACETAMINOPHEN + CAFFEINE (AXOTAL) [Concomitant]
  12. CLOTRIAMAZOLE (CLOTRIMAZOLE) [Concomitant]
  13. GABAPENTIN [Concomitant]
  14. AMITRIPTYLINE HCL [Concomitant]
  15. HYDROCODONE BITARTRATE [Concomitant]
  16. ACAMPROSATE CALCIUM [Concomitant]

REACTIONS (2)
  - HYPOTENSION [None]
  - PRINZMETAL ANGINA [None]
